FAERS Safety Report 9735670 (Version 2)
Quarter: 2013Q4

REPORT INFORMATION
  Report Type: Spontaneous
  Country: US (occurrence: None)
  Receive Date: 20131204
  Receipt Date: 20131206
  Transmission Date: 20140711
  Serious: Yes (Other)
  Sender: FDA-Public Use
  Company Number: AUR-APL-2013-09925

PATIENT
  Age: 42 Year
  Sex: Female

DRUGS (10)
  1. LISINOPRIL [Suspect]
     Indication: HYPERTENSION
     Dosage: (40 MG), ORAL
     Route: 048
  2. ATENOLOL (ATENOLOL) [Concomitant]
     Indication: PRODUCT USED FOR UNKNOWN INDICATION
  3. DOCUSATE SODIUM (DOCUSATE SODIUM) [Concomitant]
  4. POLYETHYLENE GLYCOL [Concomitant]
  5. ASPIRINE [Concomitant]
  6. NIFEDIPINE (NIFEDIPINE) (NIFEDIPINE) [Concomitant]
  7. HYDROCHLOROTHIAZIDE (HYDROCHLOROTHIAZIDE) [Concomitant]
  8. OXYCODONE (OXYCODONE) [Concomitant]
  9. AMITRIPTYLINE (AMITRIPTYLINE) [Concomitant]
  10. DIAZEPAM (DIAZEPAM) [Concomitant]

REACTIONS (4)
  - Small bowel angioedema [None]
  - Ascites [None]
  - Retroperitoneal lymphadenopathy [None]
  - Insomnia [None]
